FAERS Safety Report 8020173-1 (Version None)
Quarter: 2012Q1

REPORT INFORMATION
  Report Type: 
  Country: None (occurrence: None)
  Receive Date: 20120103
  Receipt Date: 20111213
  Transmission Date: 20120608
  Serious: Yes (Death)
  Sender: FDA-Public Use
  Company Number: CA-ROCHE-1017704

PATIENT
  Sex: Male
  Weight: 72.64 kg

DRUGS (6)
  1. DOMPERIDONE [Concomitant]
  2. TAPAZOLE [Concomitant]
  3. PANTOPRAZOLE SODIUM [Concomitant]
  4. ONDANSETRON HYDROCHLORIDE [Concomitant]
  5. XELODA [Suspect]
     Indication: GASTRIC CANCER
     Route: 048
     Dates: start: 20110719
  6. DEXAMETHASONE [Concomitant]

REACTIONS (1)
  - NEOPLASM MALIGNANT [None]
